FAERS Safety Report 5562906-X (Version None)
Quarter: 2007Q4

REPORT INFORMATION
  Report Type: 
  Country: None (occurrence: None)
  Receive Date: 20071212
  Receipt Date: 20071203
  Transmission Date: 20080405
  Serious: Yes (Other)
  Sender: FDA-Public Use
  Company Number: 2007SP024352

PATIENT
  Age: 55 Year
  Sex: Female
  Weight: 59.8748 kg

DRUGS (2)
  1. PEG-INTRON [Suspect]
     Indication: HEPATITIS C
     Dosage: SC
     Route: 058
     Dates: start: 20070920
  2. RIBAVIRIN [Suspect]
     Indication: HEPATITIS C
     Dosage: PO
     Route: 048
     Dates: start: 20070920

REACTIONS (8)
  - DRY MOUTH [None]
  - DYSGEUSIA [None]
  - INJECTION SITE ERYTHEMA [None]
  - LUNG INFECTION [None]
  - PAROSMIA [None]
  - SWOLLEN TONGUE [None]
  - THROAT TIGHTNESS [None]
  - WEIGHT DECREASED [None]
